FAERS Safety Report 8560801-5 (Version None)
Quarter: 2012Q3

REPORT INFORMATION
  Report Type: 
  Country: None (occurrence: None)
  Receive Date: 20120727
  Receipt Date: 20120727
  Transmission Date: 20120928
  Serious: Yes (Hospitalization)
  Sender: FDA-Public Use
  Company Number: None

PATIENT
  Age: 78 Year
  Sex: Female
  Weight: 43.2 kg

DRUGS (12)
  1. ATENOLOL [Concomitant]
  2. MELOXICAM [Suspect]
     Indication: OSTEOARTHRITIS
     Dosage: 75MG DAILY PO CHRONIC
     Route: 048
  3. MEGACE [Concomitant]
  4. PLAVIX [Suspect]
     Indication: CORONARY ARTERY DISEASE
     Dosage: 75MG DAILY PO CHRONIC
     Route: 048
  5. EXELON [Concomitant]
  6. IMDUR [Concomitant]
  7. VICODIN ES [Concomitant]
  8. RANEXA [Concomitant]
  9. COZAAR [Concomitant]
  10. NORVASC [Concomitant]
  11. TRAZODONE HYDROCHLORIDE [Concomitant]
  12. DEXILANT [Concomitant]

REACTIONS (2)
  - UPPER GASTROINTESTINAL HAEMORRHAGE [None]
  - OESOPHAGITIS ULCERATIVE [None]
